FAERS Safety Report 9323551 (Version 1)
Quarter: 2013Q2

REPORT INFORMATION
  Report Type: Spontaneous
  Country: GB (occurrence: GB)
  Receive Date: 20130603
  Receipt Date: 20130603
  Transmission Date: 20140414
  Serious: Yes (Other)
  Sender: FDA-Public Use
  Company Number: GB-009507513-1305GBR016889

PATIENT
  Age: 52 Year
  Sex: Female

DRUGS (2)
  1. LORATADINE [Suspect]
     Dosage: 10 MG, UNK
     Route: 048
     Dates: start: 1990, end: 20130302
  2. BROMOCRIPTINE [Concomitant]
     Indication: PROLACTINOMA
     Dosage: 2.5 MG, UNK
     Route: 048

REACTIONS (3)
  - Mental disorder [Recovered/Resolved]
  - Mood altered [Recovered/Resolved]
  - Paranoia [Recovered/Resolved]
